FAERS Safety Report 13191114 (Version 1)
Quarter: 2017Q1

REPORT INFORMATION
  Report Type: Spontaneous
  Country: US (occurrence: US)
  Receive Date: 20170207
  Receipt Date: 20170207
  Transmission Date: 20170428
  Serious: No
  Sender: FDA-Public Use
  Company Number: US-009507513-1701USA011384

PATIENT
  Sex: Male

DRUGS (2)
  1. ZEPATIER [Suspect]
     Active Substance: ELBASVIR\GRAZOPREVIR
     Indication: HEPATITIS C
     Dosage: STRENGTH:50/100MG,1 TABLET EVERY DAY, QD
     Route: 048
     Dates: start: 201612
  2. TESSALON [Concomitant]
     Active Substance: BENZONATATE

REACTIONS (2)
  - Anxiety [Unknown]
  - Fatigue [Unknown]
